FAERS Safety Report 12853118 (Version 2)
Quarter: 2017Q2

REPORT INFORMATION
  Report Type: Spontaneous
  Country: GB (occurrence: GB)
  Receive Date: 20161017
  Receipt Date: 20170411
  Transmission Date: 20170830
  Serious: Yes (Hospitalization)
  Sender: FDA-Public Use
  Company Number: PHHY2016GB138295

PATIENT
  Age: 31 Year
  Sex: Female
  Weight: 59.4 kg

DRUGS (2)
  1. PARACETAMOL [Concomitant]
     Active Substance: ACETAMINOPHEN
     Indication: PRODUCT USED FOR UNKNOWN INDICATION
     Route: 065
  2. CO-AMOXICLAV [Suspect]
     Active Substance: AMOXICILLIN\CLAVULANIC ACID
     Indication: PRODUCT USED FOR UNKNOWN INDICATION
     Dosage: 1.2 G, UNK
     Route: 042
     Dates: start: 20160926, end: 20160926

REACTIONS (7)
  - Dyspnoea [Recovering/Resolving]
  - Nausea [Recovering/Resolving]
  - Salivary hypersecretion [Unknown]
  - Maternal exposure during pregnancy [Unknown]
  - Cough [Recovering/Resolving]
  - Swelling face [Recovering/Resolving]
  - Lip swelling [Recovering/Resolving]

NARRATIVE: CASE EVENT DATE: 20160926
